FAERS Safety Report 5825225-X (Version None)
Quarter: 2008Q3

REPORT INFORMATION
  Report Type: 
  Country: None (occurrence: None)
  Receive Date: 20080729
  Receipt Date: 20080718
  Transmission Date: 20090109
  Serious: Yes (Hospitalization)
  Sender: FDA-Public Use
  Company Number: DE-BAYER-200822680GPV

PATIENT
  Sex: Female

DRUGS (14)
  1. BETAFERON [Suspect]
     Indication: MULTIPLE SCLEROSIS
     Route: 058
     Dates: start: 20040910, end: 20080511
  2. TYSABRI [Suspect]
     Indication: MULTIPLE SCLEROSIS
     Route: 042
     Dates: start: 20080523
  3. AMITRIPTYLINE HCL [Concomitant]
     Indication: DYSAESTHESIA
     Route: 048
     Dates: start: 20071214, end: 20080103
  4. AMITRIPTYLINE HCL [Concomitant]
     Route: 048
     Dates: start: 20080104, end: 20080330
  5. AMITRIPTYLINE HCL [Concomitant]
     Route: 048
     Dates: start: 20080331
  6. LISINOPRIL [Concomitant]
     Indication: HYPERTENSION
     Dosage: TOTAL DAILY DOSE: 10 MG
     Route: 048
     Dates: start: 20071121
  7. LISINOPRIL [Concomitant]
     Dosage: TOTAL DAILY DOSE: 5 MG
     Route: 048
     Dates: end: 20071120
  8. VALETTE [Concomitant]
     Indication: CONTRACEPTION
     Route: 048
  9. IBUPROFEN [Concomitant]
     Indication: BACK PAIN
     Route: 048
  10. METAMIZOL [Concomitant]
     Indication: HEADACHE
     Route: 048
  11. METHYLPREDNISOLONE [Concomitant]
     Indication: MULTIPLE SCLEROSIS RELAPSE
     Route: 042
     Dates: start: 20080620, end: 20080622
  12. FRAXIPARIN [Concomitant]
     Indication: THROMBOSIS PROPHYLAXIS
     Route: 058
     Dates: start: 20080620, end: 20080622
  13. RANITIDINE HCL [Concomitant]
     Indication: PROPHYLAXIS
     Route: 048
     Dates: start: 20080620, end: 20080620
  14. PANTOPRAZOLE SODIUM [Concomitant]
     Indication: PROPHYLAXIS
     Route: 048
     Dates: start: 20080621, end: 20080623

REACTIONS (2)
  - DRUG INEFFECTIVE [None]
  - DRUG THERAPY [None]
